FAERS Safety Report 21307130 (Version 2)
Quarter: 2022Q3

REPORT INFORMATION
  Report Type: Spontaneous
  Country: PL (occurrence: PL)
  Receive Date: 20220908
  Receipt Date: 20220924
  Transmission Date: 20221027
  Serious: No
  Sender: FDA-Public Use
  Company Number: PL-TEVA-2022-PL-2070303

PATIENT
  Age: 62 Year
  Sex: Female
  Weight: 78 kg

DRUGS (20)
  1. ATORVASTATIN [Suspect]
     Active Substance: ATORVASTATIN
     Indication: Hypertriglyceridaemia
     Dosage: 20 MILLIGRAM DAILY; 0-1-0 (1 DOSAGE FORMS,1 IN 1 D)
     Route: 065
  2. BISOPROLOL [Suspect]
     Active Substance: BISOPROLOL
     Indication: Hypertension
     Dosage: 2.5 MILLIGRAM DAILY;
     Route: 065
  3. BISOPROLOL [Suspect]
     Active Substance: BISOPROLOL
     Indication: Heart rate increased
  4. VALSARTAN [Suspect]
     Active Substance: VALSARTAN
     Indication: Hypertension
     Dosage: 80 MILLIGRAM DAILY; 0-0-1/2 (0.5 DOSAGE FORMS,1 IN 1 D)
  5. VALSARTAN [Suspect]
     Active Substance: VALSARTAN
     Indication: Heart rate increased
  6. FENOFIBRATE [Suspect]
     Active Substance: FENOFIBRATE
     Indication: Hypertriglyceridaemia
     Dosage: 267 MILLIGRAM DAILY;
     Route: 065
  7. INDAPAMIDE\PERINDOPRIL [Suspect]
     Active Substance: INDAPAMIDE\PERINDOPRIL
     Indication: Hypertension
     Dosage: 1-0-0; PERINDOPRIL 5 MG PLUS INDAPAMIDE 1.25 MG (1 DOSAGE FORMS,1 IN 1 D)
     Route: 065
  8. INDAPAMIDE\PERINDOPRIL [Suspect]
     Active Substance: INDAPAMIDE\PERINDOPRIL
     Indication: Heart rate increased
  9. CINNARIZINE [Concomitant]
     Active Substance: CINNARIZINE
     Indication: Product used for unknown indication
     Dosage: 75 MILLIGRAM DAILY; 1 DOSAGE FORMS,1 IN 8 HR
     Route: 065
  10. Magnesium lactate/pyridoxin [Concomitant]
     Indication: Product used for unknown indication
     Dosage: MAGNESIUM LACTATE 470 MG PLUS PYRIDOXINE 5 MG (0-1-0) (1 DOSAGE FORMS,1 IN 1 D)
     Route: 065
  11. RANITIDINE [Concomitant]
     Active Substance: RANITIDINE
     Indication: Product used for unknown indication
     Dosage: 20 MILLIGRAM DAILY;
     Route: 065
  12. PENTAERYTHRITOL [Concomitant]
     Active Substance: PENTAERYTHRITOL
     Indication: Product used for unknown indication
     Dosage: 100 MILLIGRAM DAILY; 1-0-0 (1 DOSAGE FORMS,1 IN 1 D)
     Route: 065
  13. OMEGA-3 FATTY ACIDS [Concomitant]
     Active Substance: OMEGA-3 FATTY ACIDS
     Indication: Product used for unknown indication
     Dosage: 300 MILLIGRAM DAILY; SOYBEAN PHOSPHOLIPIDS
     Route: 065
  14. OMEGA-3 FATTY ACIDS [Concomitant]
     Active Substance: OMEGA-3 FATTY ACIDS
     Dosage: 60 MILLIGRAM DAILY;
     Route: 065
  15. GLUCOSAMINE SULFATE;POTASSIUM CHLORIDE;VITAMIN C [Concomitant]
     Indication: Product used for unknown indication
     Dosage: GLUCOSAMINE SULFATE 500 MG PLUS POTASSIUM CHLORIDE 166.7 MG PLUS VITAMIN C 20 MG (0-1-0) (1 IN 1 D)
     Route: 065
  16. ASPIRIN [Concomitant]
     Active Substance: ASPIRIN
     Indication: Product used for unknown indication
     Dosage: 20 MILLIGRAM DAILY;
     Route: 065
  17. METFORMIN [Concomitant]
     Active Substance: METFORMIN HYDROCHLORIDE
     Indication: Type 2 diabetes mellitus
     Dosage: 2000 MILLIGRAM DAILY; 1-0-1 (1 DOSAGE FORMS,1 IN 1 D)
     Route: 065
  18. SULPIRIDE [Concomitant]
     Active Substance: SULPIRIDE
     Indication: Product used for unknown indication
     Dosage: 1-0-0 (1 DOSAGE FORMS,1 IN 1 D)
     Route: 065
  19. POTASSIUM CHLORIDE [Concomitant]
     Active Substance: POTASSIUM CHLORIDE
     Indication: Product used for unknown indication
     Dosage: 0-1-0 (1 DOSAGE FORMS,1 IN 1 D)
     Route: 065
  20. GLICLAZIDE [Concomitant]
     Active Substance: GLICLAZIDE
     Indication: Type 2 diabetes mellitus
     Dosage: 60 MILLIGRAM DAILY; 2-0-0 (2 DOSAGE FORMS,1 IN 1 D)
     Route: 065

REACTIONS (2)
  - Alanine aminotransferase increased [Recovered/Resolved]
  - Drug ineffective [Unknown]
